FAERS Safety Report 5341326-7 (Version None)
Quarter: 2007Q2

REPORT INFORMATION
  Report Type: 
  Country: None (occurrence: None)
  Receive Date: 20070523
  Receipt Date: 20070516
  Transmission Date: 20071010
  Serious: Yes (Death, Life-Threatening, Other)
  Sender: FDA-Public Use
  Company Number: AECAN200700120

PATIENT
  Age: 75 Year
  Sex: Male

DRUGS (2)
  1. ALBUMIN (HUMAN) [Suspect]
     Indication: COLON CANCER
     Dosage: 100 ML;1X;IV
     Route: 042
     Dates: start: 20070410, end: 20070410
  2. BLOOD AND RELATED PRODUCTS [Concomitant]

REACTIONS (8)
  - DEPRESSED LEVEL OF CONSCIOUSNESS [None]
  - DYSPNOEA [None]
  - HYPERHIDROSIS [None]
  - HYPOTENSION [None]
  - INFUSION RELATED REACTION [None]
  - OXYGEN SATURATION DECREASED [None]
  - RENAL FAILURE ACUTE [None]
  - RESPIRATORY RATE INCREASED [None]
